FAERS Safety Report 12153891 (Version 1)
Quarter: 2016Q1

REPORT INFORMATION
  Report Type: Spontaneous
  Country: US (occurrence: US)
  Receive Date: 20160307
  Receipt Date: 20160307
  Transmission Date: 20160526
  Serious: No
  Sender: FDA-Public Use
  Company Number: US-WEST-WARD PHARMACEUTICALS CORP.-US-H14001-15-01018

PATIENT
  Age: 87 Year
  Sex: Male
  Weight: 113.5 kg

DRUGS (1)
  1. METOCLOPRAMIDE. [Suspect]
     Active Substance: METOCLOPRAMIDE
     Indication: GASTROOESOPHAGEAL REFLUX DISEASE
     Route: 065
     Dates: start: 201501

REACTIONS (2)
  - Excessive eye blinking [Unknown]
  - Movement disorder [Unknown]

NARRATIVE: CASE EVENT DATE: 201502
